FAERS Safety Report 17462928 (Version 6)
Quarter: 2020Q3

REPORT INFORMATION
  Report Type: Report from Study
  Country: US (occurrence: US)
  Receive Date: 20200226
  Receipt Date: 20200923
  Transmission Date: 20201102
  Serious: Yes (Hospitalization)
  Sender: FDA-Public Use
  Company Number: US-EISAI MEDICAL RESEARCH-EC-2020-070187

PATIENT
  Age: 72 Year
  Sex: Male
  Weight: 98 kg

DRUGS (36)
  1. LENVIMA [Suspect]
     Active Substance: LENVATINIB
     Indication: HEPATOCELLULAR CARCINOMA
     Route: 048
     Dates: start: 20200208, end: 2020
  2. ISOSORBIDE MONONITRATE. [Concomitant]
     Active Substance: ISOSORBIDE MONONITRATE
  3. LANSOPRAZOLE. [Concomitant]
     Active Substance: LANSOPRAZOLE
  4. CARVEDILOL. [Concomitant]
     Active Substance: CARVEDILOL
  5. METHYLPREDNISOLONE. [Concomitant]
     Active Substance: METHYLPREDNISOLONE
  6. MULTIVITAMINS [Concomitant]
     Active Substance: VITAMINS
  7. AZITHROMYCIN ANHYDROUS. [Concomitant]
     Active Substance: AZITHROMYCIN ANHYDROUS
  8. VITAMIN D3 [Concomitant]
     Active Substance: CHOLECALCIFEROL
  9. CLINDAMYCIN. [Concomitant]
     Active Substance: CLINDAMYCIN
  10. AMLODIPINE [Concomitant]
     Active Substance: AMLODIPINE BESYLATE
  11. PLAVIX [Concomitant]
     Active Substance: CLOPIDOGREL BISULFATE
  12. AMIODARONE [Concomitant]
     Active Substance: AMIODARONE
  13. BACTRIM [Concomitant]
     Active Substance: SULFAMETHOXAZOLE\TRIMETHOPRIM
  14. CEFDINIR. [Concomitant]
     Active Substance: CEFDINIR
  15. CHLORTHALIDONE. [Concomitant]
     Active Substance: CHLORTHALIDONE
  16. ASPIRIN. [Concomitant]
     Active Substance: ASPIRIN
  17. NITROGLYCERIN. [Concomitant]
     Active Substance: NITROGLYCERIN
  18. PROAIR HFA [Concomitant]
     Active Substance: ALBUTEROL SULFATE
  19. LENVIMA [Suspect]
     Active Substance: LENVATINIB
     Route: 048
     Dates: start: 2020, end: 202003
  20. NITROFURANTOIN. [Concomitant]
     Active Substance: NITROFURANTOIN
  21. SALINE MIST [Concomitant]
     Active Substance: SODIUM CHLORIDE
  22. ATORVASTATIN [Concomitant]
     Active Substance: ATORVASTATIN
  23. CIPROFLOXACIN. [Concomitant]
     Active Substance: CIPROFLOXACIN
  24. RANOLAZINE. [Concomitant]
     Active Substance: RANOLAZINE
  25. PANTOPRAZOLE [Concomitant]
     Active Substance: PANTOPRAZOLE
  26. LENVIMA [Suspect]
     Active Substance: LENVATINIB
     Route: 048
     Dates: start: 202004
  27. ELIQUIS [Concomitant]
     Active Substance: APIXABAN
  28. LEVOFLOXACIN. [Concomitant]
     Active Substance: LEVOFLOXACIN
  29. PREDNISONE. [Concomitant]
     Active Substance: PREDNISONE
  30. AMOXICILLIN CLAVULANATE [Concomitant]
     Active Substance: AMOXICILLIN\CLAVULANIC ACID
  31. MUPIROCIN. [Concomitant]
     Active Substance: MUPIROCIN
  32. DILTIAZEM. [Concomitant]
     Active Substance: DILTIAZEM
  33. LOSARTAN. [Concomitant]
     Active Substance: LOSARTAN
  34. HYDROCHLOROTHIAZIDE. [Concomitant]
     Active Substance: HYDROCHLOROTHIAZIDE
  35. MINOCYCLINE [Concomitant]
     Active Substance: MINOCYCLINE HYDROCHLORIDE
  36. CEPHALEXIN. [Concomitant]
     Active Substance: CEPHALEXIN

REACTIONS (13)
  - Blood pressure increased [Unknown]
  - Hernia obstructive [Unknown]
  - Pain [Unknown]
  - Insomnia [Unknown]
  - Blood pressure fluctuation [Recovering/Resolving]
  - Urinary tract infection [Unknown]
  - Atrial fibrillation [Unknown]
  - Coronavirus infection [Unknown]
  - Malaise [Unknown]
  - Peripheral swelling [Unknown]
  - Chest discomfort [Unknown]
  - Nausea [Unknown]
  - Heart rate irregular [Unknown]

NARRATIVE: CASE EVENT DATE: 202002
